FAERS Safety Report 24325382 (Version 2)
Quarter: 2025Q1

REPORT INFORMATION
  Report Type: Report from Study
  Country: GB (occurrence: GB)
  Receive Date: 20240916
  Receipt Date: 20250115
  Transmission Date: 20250409
  Serious: Yes (Other)
  Sender: SAMSUNG BIOEPIS
  Company Number: GB-SAMSUNG BIOEPIS-SB-2024-26940

PATIENT
  Age: 65 Year
  Sex: Male

DRUGS (1)
  1. ETANERCEPT [Suspect]
     Active Substance: ETANERCEPT
     Indication: Rheumatoid arthritis
     Route: 058
     Dates: end: 20240826

REACTIONS (5)
  - Neoplasm malignant [Unknown]
  - Rheumatoid arthritis [Unknown]
  - Malaise [Unknown]
  - COVID-19 [Unknown]
  - Influenza [Unknown]
